FAERS Safety Report 15415090 (Version 1)
Quarter: 2018Q3

REPORT INFORMATION
  Report Type: Report from Study
  Country: GB (occurrence: US)
  Receive Date: 20180921
  Receipt Date: 20180921
  Transmission Date: 20181010
  Serious: Yes (Hospitalization, Other)
  Sender: FDA-Public Use
  Company Number: GB-ALEXION PHARMACEUTICALS INC.-A201812138

PATIENT
  Sex: Male

DRUGS (1)
  1. SOLIRIS [Suspect]
     Active Substance: ECULIZUMAB
     Indication: ATYPICAL HAEMOLYTIC URAEMIC SYNDROME
     Dosage: UNK, Q2W
     Route: 042

REACTIONS (4)
  - Pulmonary oedema [Unknown]
  - Post herpetic neuralgia [Not Recovered/Not Resolved]
  - Heart rate decreased [Unknown]
  - Herpes zoster [Unknown]

NARRATIVE: CASE EVENT DATE: 201807
